FAERS Safety Report 4471496-4 (Version None)
Quarter: 2004Q4

REPORT INFORMATION
  Report Type: 
  Country: None (occurrence: None)
  Receive Date: 20041012
  Receipt Date: 20040820
  Transmission Date: 20050328
  Serious: Yes (Hospitalization, Other)
  Sender: FDA-Public Use
  Company Number: PHEH2004US09259

PATIENT
  Age: 55 Year
  Sex: Female

DRUGS (4)
  1. CLOZARIL [Suspect]
     Dosage: 225 MG, UNK
     Route: 048
     Dates: start: 20030527
  2. LAMICTAL ^WELLCOME^ [Suspect]
     Dosage: 200 MG, UNK
  3. ZOLOFT [Suspect]
     Dosage: 100 MG, UNK
  4. GEMFIBROZIL [Suspect]
     Dosage: 600 MG, BID

REACTIONS (7)
  - ANGLE CLOSURE GLAUCOMA [None]
  - DRUG INTERACTION [None]
  - EYE PAIN [None]
  - EYE REDNESS [None]
  - HYPERCHOLESTEROLAEMIA [None]
  - IRIDOTOMY [None]
  - WEIGHT INCREASED [None]
